FAERS Safety Report 8607556-3 (Version None)
Quarter: 2012Q3

REPORT INFORMATION
  Report Type: 
  Country: None (occurrence: None)
  Receive Date: 20120821
  Receipt Date: 20120809
  Transmission Date: 20120928
  Serious: Yes (Hospitalization)
  Sender: FDA-Public Use
  Company Number: US-BAYER-2012-006438

PATIENT
  Age: 34 Year
  Sex: Female
  Weight: 68.027 kg

DRUGS (22)
  1. YASMIN [Suspect]
     Indication: POLYCYSTIC OVARIES
  2. ROCEPHIN [Concomitant]
  3. BENADRYL [Concomitant]
     Route: 048
  4. YAZ [Suspect]
     Indication: HEADACHE
  5. MULTI-VITAMIN [Concomitant]
     Route: 048
  6. YAZ [Suspect]
     Indication: CONTRACEPTION
  7. YASMIN [Suspect]
     Indication: ACNE
     Dosage: UNK
     Dates: start: 20030601, end: 20091227
  8. YASMIN [Suspect]
     Indication: MIGRAINE
  9. PERCOCET [Concomitant]
     Route: 048
  10. XANAX [Concomitant]
     Indication: ANXIETY
     Dosage: 2 MG, TID
     Route: 048
     Dates: start: 20090101, end: 20110101
  11. PRENATAL [Concomitant]
     Route: 048
  12. AZITHROMYCIN [Concomitant]
  13. PROVENTIL-HFA [Concomitant]
     Dosage: 90 MCG - INHALE 1 PUFF EVERY 4-6 HOURS AS NEEDED
     Route: 045
  14. PROZAC [Concomitant]
     Dosage: 20 MG CAPSULE EVERYDAY IN MORNING
     Route: 048
  15. YAZ [Suspect]
     Indication: ACNE
     Dosage: UNK
     Dates: start: 20030601, end: 20091227
  16. YAZ [Suspect]
     Indication: MIGRAINE
  17. YAZ [Suspect]
     Indication: POLYCYSTIC OVARIES
  18. YASMIN [Suspect]
     Indication: CONTRACEPTION
  19. ZOLPIDEM TARTRATE [Concomitant]
     Indication: SLEEP DISORDER THERAPY
     Dosage: 10 MG, UNK
     Route: 048
     Dates: start: 20060101
  20. YASMIN [Suspect]
     Indication: HEADACHE
  21. PROZAC [Concomitant]
     Indication: DEPRESSION
     Dosage: 60 MG, DAILY
     Route: 048
     Dates: start: 20070101, end: 20090101
  22. LEVAQUIN [Concomitant]
     Dosage: 500 MG, QD
     Route: 048

REACTIONS (5)
  - DEEP VEIN THROMBOSIS [None]
  - EMOTIONAL DISTRESS [None]
  - PULMONARY EMBOLISM [None]
  - PAIN [None]
  - INJURY [None]
